FAERS Safety Report 23998726 (Version 1)
Quarter: 2024Q2

REPORT INFORMATION
  Report Type: Report from Study
  Country: IN (occurrence: IN)
  Receive Date: 20240621
  Receipt Date: 20240621
  Transmission Date: 20240715
  Serious: Yes (Death, Hospitalization, Other)
  Sender: FDA-Public Use
  Company Number: IN-Accord-430760

PATIENT
  Age: 48 Year
  Sex: Male

DRUGS (1)
  1. METHOTREXATE [Interacting]
     Active Substance: METHOTREXATE
     Indication: Rheumatoid arthritis
     Dosage: 15 MG X 5 DAYS

REACTIONS (7)
  - Septic shock [Fatal]
  - Pancytopenia [Unknown]
  - Acute kidney injury [Unknown]
  - Drug interaction [Unknown]
  - Mucosal inflammation [Unknown]
  - Diarrhoea [Unknown]
  - Hypertransaminasaemia [Unknown]
